FAERS Safety Report 20938793 (Version 2)
Quarter: 2022Q3

REPORT INFORMATION
  Report Type: Report from Study
  Country: US (occurrence: None)
  Receive Date: 20220609
  Receipt Date: 20220715
  Transmission Date: 20221026
  Serious: Yes (Hospitalization)
  Sender: FDA-Public Use
  Company Number: US-ROCHE-3109662

PATIENT
  Age: 29 Year
  Sex: Male
  Weight: 77.1 kg

DRUGS (1)
  1. ATEZOLIZUMAB [Suspect]
     Active Substance: ATEZOLIZUMAB
     Indication: Chondrosarcoma
     Dosage: LAST ADMINISTERED DATE: 03/MAY/2021?TOTAL DOSE ADMINISTERED THIS COURSE (DOSE): 1200 MG
     Route: 041
     Dates: start: 20210412

REACTIONS (1)
  - Vomiting [Recovered/Resolved]

NARRATIVE: CASE EVENT DATE: 20210523
